FAERS Safety Report 5754555-5 (Version None)
Quarter: 2008Q2

REPORT INFORMATION
  Report Type: 
  Country: None (occurrence: None)
  Receive Date: 20080530
  Receipt Date: 20080519
  Transmission Date: 20081010
  Serious: Yes (Other)
  Sender: FDA-Public Use
  Company Number: US-PFIZER INC-2008043262

PATIENT
  Sex: Female

DRUGS (7)
  1. LYRICA [Suspect]
     Indication: FIBROMYALGIA
     Dates: start: 20080101, end: 20080513
  2. LASIX [Concomitant]
  3. NEXIUM [Concomitant]
  4. ALDACTAZIDE [Concomitant]
  5. POTASSIUM CHLORIDE [Concomitant]
  6. ZANAFLEX [Concomitant]
  7. NORCO [Concomitant]

REACTIONS (4)
  - CARDIAC FAILURE CONGESTIVE [None]
  - CONFUSIONAL STATE [None]
  - OXYGEN SATURATION DECREASED [None]
  - PNEUMONIA [None]
